FAERS Safety Report 14677440 (Version 1)
Quarter: 2018Q1

REPORT INFORMATION
  Report Type: Spontaneous
  Country: GB (occurrence: GB)
  Receive Date: 20180325
  Receipt Date: 20180325
  Transmission Date: 20180509
  Serious: Yes (Hospitalization)
  Sender: FDA-Public Use
  Company Number: GB-TEVA-2018-GB-874420

PATIENT
  Age: 68 Year
  Sex: Male
  Weight: 89.4 kg

DRUGS (24)
  1. FOLIC ACID. [Concomitant]
     Active Substance: FOLIC ACID
  2. RANITIDINE. [Concomitant]
     Active Substance: RANITIDINE
  3. ACETYLSALICYLIC ACID [Concomitant]
     Active Substance: ASPIRIN
  4. TAMSULOSIN HYDROCHLORIDE. [Concomitant]
     Active Substance: TAMSULOSIN HYDROCHLORIDE
  5. LOPERAMIDE [Concomitant]
     Active Substance: LOPERAMIDE
  6. PARACETAMOL [Concomitant]
     Active Substance: ACETAMINOPHEN
  7. ATORVASTATIN [Concomitant]
     Active Substance: ATORVASTATIN
  8. TICAGRELOR. [Concomitant]
     Active Substance: TICAGRELOR
  9. ONDANSETRON [Concomitant]
     Active Substance: ONDANSETRON
  10. DOXAZOSIN [Concomitant]
     Active Substance: DOXAZOSIN\DOXAZOSIN MESYLATE
  11. LERCANIDIPINE [Concomitant]
     Active Substance: LERCANIDIPINE
  12. QUININE SULFATE. [Concomitant]
     Active Substance: QUININE SULFATE
  13. CARVEDILOL. [Concomitant]
     Active Substance: CARVEDILOL
  14. SPIRONOLACTONE. [Concomitant]
     Active Substance: SPIRONOLACTONE
  15. BUDESONIDE. [Concomitant]
     Active Substance: BUDESONIDE
  16. HYDRALAZINE [Concomitant]
     Active Substance: HYDRALAZINE HYDROCHLORIDE
  17. ALFACALCIDOL [Concomitant]
     Active Substance: ALFACALCIDOL
  18. VALSARTAN. [Concomitant]
     Active Substance: VALSARTAN
  19. LANSOPRAZOLE. [Suspect]
     Active Substance: LANSOPRAZOLE
     Indication: PROPHYLAXIS AGAINST GASTROINTESTINAL ULCER
     Dosage: 60 MILLIGRAM DAILY;
     Route: 048
  20. FLUTICASONE. [Concomitant]
     Active Substance: FLUTICASONE
  21. NICORANDIL [Concomitant]
     Active Substance: NICORANDIL
  22. FINASTERIDE. [Concomitant]
     Active Substance: FINASTERIDE
  23. SODIUM HYDROGEN CARBONATE [Concomitant]
     Active Substance: SODIUM BICARBONATE
  24. MOXONIDINE [Concomitant]
     Active Substance: MOXONIDINE

REACTIONS (1)
  - Colitis microscopic [Not Recovered/Not Resolved]
